FAERS Safety Report 5157981-0 (Version None)
Quarter: 2006Q4

REPORT INFORMATION
  Report Type: 
  Country: None (occurrence: None)
  Receive Date: 20061115
  Receipt Date: 20061102
  Transmission Date: 20070319
  Serious: Yes (Life-Threatening, Hospitalization)
  Sender: FDA-Public Use
  Company Number: 2004218742IT

PATIENT
  Age: 50 Year
  Sex: Male
  Weight: 72.0312 kg

DRUGS (1)
  1. SUTENT [Suspect]
     Indication: GASTROINTESTINAL STROMAL TUMOUR
     Dosage: 50 MG (1 IN 1 D), ORAL
     Route: 048
     Dates: start: 20040227, end: 20040725

REACTIONS (4)
  - ANAEMIA [None]
  - INTESTINAL OBSTRUCTION [None]
  - MELAENA [None]
  - PYREXIA [None]
